FAERS Safety Report 7038694-7 (Version None)
Quarter: 2010Q4

REPORT INFORMATION
  Report Type: 
  Country: None (occurrence: None)
  Receive Date: 20101012
  Receipt Date: 20100128
  Transmission Date: 20110411
  Serious: No
  Sender: FDA-Public Use
  Company Number: US-ALLERGAN-1001120US

PATIENT
  Age: 52 Year
  Sex: Male

DRUGS (1)
  1. ELIMITE [Suspect]
     Indication: LICE INFESTATION
     Dosage: UNK
     Dates: start: 20100126, end: 20100127

REACTIONS (3)
  - ABDOMINAL PAIN [None]
  - DIARRHOEA [None]
  - NAUSEA [None]
